FAERS Safety Report 23522276 (Version 1)
Quarter: 2024Q1

REPORT INFORMATION
  Report Type: Spontaneous
  Country: FR (occurrence: FR)
  Receive Date: 20240214
  Receipt Date: 20240214
  Transmission Date: 20240410
  Serious: Yes (Hospitalization)
  Sender: FDA-Public Use
  Company Number: None

PATIENT
  Age: 31 Year
  Sex: Female
  Weight: 87 kg

DRUGS (2)
  1. KETOPROFEN [Suspect]
     Active Substance: KETOPROFEN
     Indication: Back pain
     Dosage: DOSAGE NOT SPECIFIED
     Route: 048
     Dates: start: 20230512, end: 20230518
  2. THIOCOLCHICOSIDE [Suspect]
     Active Substance: THIOCOLCHICOSIDE
     Indication: Back pain
     Dosage: DOSAGE NOT SPECIFIED
     Route: 048
     Dates: start: 20230512, end: 20230518

REACTIONS (4)
  - Abdominal pain [Recovered/Resolved]
  - Jaundice [Recovered/Resolved]
  - Pancreatitis [Recovered/Resolved]
  - Acute kidney injury [Recovered/Resolved]

NARRATIVE: CASE EVENT DATE: 20230501
